FAERS Safety Report 13451925 (Version 1)
Quarter: 2017Q2

REPORT INFORMATION
  Report Type: Spontaneous
  Country: US (occurrence: US)
  Receive Date: 20170417
  Receipt Date: 20170417
  Transmission Date: 20170830
  Serious: No
  Sender: FDA-Public Use
  Company Number: None

PATIENT
  Age: 65 Year
  Sex: Female

DRUGS (18)
  1. AMPYRA [Suspect]
     Active Substance: DALFAMPRIDINE
     Indication: MULTIPLE SCLEROSIS
     Route: 048
     Dates: start: 201605
  2. PULMICORT TURBUHALER [Concomitant]
     Active Substance: BUDESONIDE
  3. ASPIRIN. [Concomitant]
     Active Substance: ASPIRIN
  4. CEPHALAXIN [Concomitant]
  5. FLONASE [Concomitant]
     Active Substance: FLUTICASONE PROPIONATE
  6. OMEPRAZOLE. [Concomitant]
     Active Substance: OMEPRAZOLE
  7. LEVOTHYROXINE. [Concomitant]
     Active Substance: LEVOTHYROXINE
  8. METROGEL [Concomitant]
     Active Substance: METRONIDAZOLE
  9. OXYBUTYNIN [Concomitant]
     Active Substance: OXYBUTYNIN
  10. RITUXAN [Concomitant]
     Active Substance: RITUXIMAB
  11. PROMETHAZINE-DM [Concomitant]
  12. SIMVASTATIN. [Concomitant]
     Active Substance: SIMVASTATIN
  13. CARBAMAZEPINE. [Concomitant]
     Active Substance: CARBAMAZEPINE
  14. FLUOXETINE [Concomitant]
     Active Substance: FLUOXETINE HYDROCHLORIDE
  15. ALBUTEROL HFA [Concomitant]
     Active Substance: ALBUTEROL SULFATE
  16. DEXEDRINE [Concomitant]
     Active Substance: DEXTROAMPHETAMINE SULFATE
  17. QVAR [Concomitant]
     Active Substance: BECLOMETHASONE DIPROPIONATE
  18. ALBUTEROL INHL NEB SOLN [Concomitant]

REACTIONS (9)
  - Blood immunoglobulin G decreased [None]
  - Bronchospasm [None]
  - Rhinitis allergic [None]
  - Wheezing [None]
  - Asthma [None]
  - PO2 decreased [None]
  - B-lymphocyte count decreased [None]
  - Blood immunoglobulin M decreased [None]
  - CD4 lymphocytes increased [None]

NARRATIVE: CASE EVENT DATE: 20170317
